FAERS Safety Report 4442220-6 (Version None)
Quarter: 2004Q3

REPORT INFORMATION
  Report Type: 
  Country: None (occurrence: None)
  Receive Date: 20040903
  Receipt Date: 20040719
  Transmission Date: 20050211
  Serious: Yes (Other)
  Sender: FDA-Public Use
  Company Number: 2004UW14976

PATIENT
  Age: 63 Year
  Sex: Male
  Weight: 74.8435 kg

DRUGS (6)
  1. CRESTOR [Suspect]
     Indication: BLOOD CHOLESTEROL INCREASED
     Dosage: 10 MG QD PO
     Route: 048
     Dates: start: 20040601, end: 20040717
  2. CRESTOR [Suspect]
     Indication: BLOOD TRIGLYCERIDES INCREASED
     Dosage: 10 MG QD PO
     Route: 048
     Dates: start: 20040601, end: 20040717
  3. CRESTOR [Suspect]
     Indication: BLOOD CHOLESTEROL INCREASED
     Dosage: 20 MG QD PO
     Route: 048
     Dates: start: 20040718
  4. CRESTOR [Suspect]
     Indication: BLOOD TRIGLYCERIDES INCREASED
     Dosage: 20 MG QD PO
     Route: 048
     Dates: start: 20040718
  5. TRICOR [Concomitant]
  6. ZESTRIL [Concomitant]

REACTIONS (1)
  - MUSCULOSKELETAL STIFFNESS [None]
